FAERS Safety Report 5650713-9 (Version None)
Quarter: 2008Q1

REPORT INFORMATION
  Report Type: 
  Country: None (occurrence: None)
  Receive Date: 20080303
  Receipt Date: 20080215
  Transmission Date: 20080703
  Serious: Yes (Death, Hospitalization)
  Sender: FDA-Public Use
  Company Number: 2008EU000251

PATIENT
  Age: 56 Year
  Sex: Female

DRUGS (24)
  1. TACROLIMUS [Suspect]
     Indication: TRANSPLANT
     Dosage: 0.5 MG, BID, ORAL
     Route: 048
     Dates: start: 20070315
  2. MYCOPHENOLATE SODIUM (MYCOPHENOLATE SODIUM) [Concomitant]
  3. GLUCOCORTICOIDS [Concomitant]
  4. METOPROLOL TARTRATE [Concomitant]
  5. LOSARTAN POTASSIUM [Concomitant]
  6. OMEPRAZOL (OMEPRAZOLE MAGNESIUM) [Concomitant]
  7. VITAMIN B COMPLEX (ASCORBIC ACID) [Concomitant]
  8. PYRIDOXIN [Concomitant]
  9. FOLIC ACID [Concomitant]
  10. NOVORAPID (INSULIN ASPART) [Concomitant]
  11. LANTUS [Concomitant]
  12. ESTRADIOL (ESTRADIOL VALERATE) [Concomitant]
  13. CETIRIZIN GENERICS (CETIRIZINE HYDROCHLORIDE) [Concomitant]
  14. CLEMASTINE FUMARATE [Concomitant]
  15. ACETYLSALICYLIC ACID [Concomitant]
  16. FLUVASTATIN [Concomitant]
  17. FUROSEMIDE [Concomitant]
  18. ISOSORBIDMONONITRAT (ISOSORBIDE MONONITRATE) [Concomitant]
  19. SPIRONOLAKTON [Concomitant]
  20. DIGOXIN [Concomitant]
  21. LEVOTIROXINA (LEVOTHYROXINE SODIUM) [Concomitant]
  22. ALFACALCIDOL (ALFACALCIDOL) [Concomitant]
  23. CALCIUM CARBONATE [Concomitant]
  24. DUROFERON (FERROUS SULFATE) [Concomitant]

REACTIONS (2)
  - CARDIAC ARREST [None]
  - VIRAL DIARRHOEA [None]
